FAERS Safety Report 17493225 (Version 1)
Quarter: 2020Q1

REPORT INFORMATION
  Report Type: Spontaneous
  Country: US (occurrence: US)
  Receive Date: 20200303
  Receipt Date: 20200303
  Transmission Date: 20200409
  Serious: No
  Sender: FDA-Public Use
  Company Number: US-AMNEAL PHARMACEUTICALS-2019-IPXL-00579

PATIENT
  Sex: Female
  Weight: 64 kg

DRUGS (1)
  1. RYTARY [Suspect]
     Active Substance: CARBIDOPA\LEVODOPA
     Indication: PRODUCT USED FOR UNKNOWN INDICATION
     Dosage: 2 DOSAGE FORM, TID
     Route: 048
     Dates: start: 2017

REACTIONS (5)
  - Mood altered [Unknown]
  - Depression [Unknown]
  - Movement disorder [Unknown]
  - Expired product administered [Unknown]
  - Gait inability [Unknown]
